FAERS Safety Report 9152464 (Version 1)
Quarter: 2013Q1

REPORT INFORMATION
  Report Type: Spontaneous
  Country: US (occurrence: US)
  Receive Date: 20130308
  Receipt Date: 20130308
  Transmission Date: 20140127
  Serious: No
  Sender: FDA-Public Use
  Company Number: US-ASTRAZENECA-2013SE12842

PATIENT
  Sex: 0

DRUGS (2)
  1. PULMICORT FLEXHALER [Suspect]
     Indication: ASTHMA
     Route: 055
     Dates: start: 1993
  2. SEREVENT DISKUS [Concomitant]
     Indication: ASTHMA

REACTIONS (6)
  - Lung infection [Unknown]
  - Malaise [Unknown]
  - Upper respiratory tract infection [Unknown]
  - Bronchitis [Unknown]
  - Asthma [Unknown]
  - Drug ineffective [Unknown]
